FAERS Safety Report 6912821-1 (Version None)
Quarter: 2010Q3

REPORT INFORMATION
  Report Type: 
  Country: None (occurrence: None)
  Receive Date: 20100806
  Receipt Date: 20090130
  Transmission Date: 20110219
  Serious: No
  Sender: FDA-Public Use
  Company Number: US-PFIZER INC-2009163758

PATIENT
  Sex: Female
  Weight: 78.9 kg

DRUGS (2)
  1. DETROL LA [Suspect]
     Indication: URINARY INCONTINENCE
     Dosage: 4 MG, 1X/DAY
     Route: 048
     Dates: start: 20081119
  2. HYDROXYCHLOROQUINE [Concomitant]

REACTIONS (3)
  - DRY MOUTH [None]
  - INSOMNIA [None]
  - VISION BLURRED [None]
